FAERS Safety Report 7791454-1 (Version None)
Quarter: 2011Q4

REPORT INFORMATION
  Report Type: 
  Country: None (occurrence: None)
  Receive Date: 20111003
  Receipt Date: 20110922
  Transmission Date: 20120403
  Serious: Yes (Other)
  Sender: FDA-Public Use
  Company Number: US-US-EMD SERONO, INC.-7085137

PATIENT
  Sex: Female

DRUGS (3)
  1. PROVIGIL [Concomitant]
  2. PROZAC [Concomitant]
  3. REBIF [Suspect]
     Indication: MULTIPLE SCLEROSIS
     Dates: start: 20110808

REACTIONS (2)
  - DEPRESSION [None]
  - SUICIDAL IDEATION [None]
